FAERS Safety Report 16740408 (Version 1)
Quarter: 2019Q3

REPORT INFORMATION
  Report Type: Spontaneous
  Country: US (occurrence: US)
  Receive Date: 20190709
  Receipt Date: 20190709
  Transmission Date: 20191005
  Serious: No
  Sender: FDA-Public Use
  Company Number: None

PATIENT
  Age: 49 Year
  Sex: Female

DRUGS (1)
  1. SOLU-MEDROL [Suspect]
     Active Substance: METHYLPREDNISOLONE SODIUM SUCCINATE
     Dosage: ?          OTHER FREQUENCY:UNKNOWN;?
     Route: 042
     Dates: start: 201905

REACTIONS (4)
  - Flushing [None]
  - Blood glucose increased [None]
  - Anxiety [None]
  - Heart rate increased [None]

NARRATIVE: CASE EVENT DATE: 20190709
